FAERS Safety Report 7035687-0 (Version None)
Quarter: 2010Q4

REPORT INFORMATION
  Report Type: 
  Country: None (occurrence: None)
  Receive Date: 20101008
  Receipt Date: 20100928
  Transmission Date: 20110411
  Serious: Yes (Hospitalization, Other)
  Sender: FDA-Public Use
  Company Number: US-PFIZER INC-2010088592

PATIENT
  Sex: Male
  Weight: 67.12 kg

DRUGS (5)
  1. LYRICA [Suspect]
     Indication: NEURALGIA
     Dosage: 50 MG, 1X/DAY
     Route: 048
  2. LYRICA [Suspect]
     Indication: NERVE INJURY
  3. NEURONTIN [Suspect]
     Indication: NERVE INJURY
     Dosage: 100 MG, UNK
  4. CYMBALTA [Suspect]
     Dosage: UNK
  5. KLONOPIN [Concomitant]
     Indication: ANXIETY
     Dosage: UNK

REACTIONS (11)
  - CONSTIPATION [None]
  - DIARRHOEA [None]
  - DIZZINESS [None]
  - DRUG INEFFECTIVE [None]
  - DYSPEPSIA [None]
  - FATIGUE [None]
  - HEADACHE [None]
  - LYMPHADENOPATHY [None]
  - NEPHROLITHIASIS [None]
  - NERVOUSNESS [None]
  - SOMNOLENCE [None]
